FAERS Safety Report 19907666 (Version 1)
Quarter: 2021Q3

REPORT INFORMATION
  Report Type: Spontaneous
  Country: SK (occurrence: SK)
  Receive Date: 20210930
  Receipt Date: 20210930
  Transmission Date: 20211014
  Serious: Yes (Other)
  Sender: FDA-Public Use
  Company Number: SK-ASTRAZENECA-2021A745616

PATIENT
  Age: 56 Year
  Sex: Female

DRUGS (2)
  1. FULVESTRANT. [Suspect]
     Active Substance: FULVESTRANT
     Indication: BREAST CANCER
     Route: 030
     Dates: start: 201805, end: 201810
  2. ZOLEDRONIC ACID [Concomitant]
     Active Substance: ZOLEDRONIC ACID
     Indication: BREAST CANCER
     Route: 065

REACTIONS (11)
  - Tumour marker increased [Not Recovered/Not Resolved]
  - Adrenal disorder [Unknown]
  - Metastasis [Unknown]
  - Hepatic lesion [Unknown]
  - Pulmonary calcification [Unknown]
  - Metastases to bone [Unknown]
  - Bone lesion [Unknown]
  - Malignant neoplasm progression [Not Recovered/Not Resolved]
  - Spleen disorder [Unknown]
  - Breast cancer [Not Recovered/Not Resolved]
  - Nodule [Unknown]

NARRATIVE: CASE EVENT DATE: 2018
